FAERS Safety Report 4913787-6 (Version None)
Quarter: 2006Q1

REPORT INFORMATION
  Report Type: 
  Country: None (occurrence: None)
  Receive Date: 20060216
  Receipt Date: 20060208
  Transmission Date: 20060701
  Serious: Yes (Other)
  Sender: FDA-Public Use
  Company Number: RU-GLAXOSMITHKLINE-B0410253A

PATIENT
  Age: 4 Year
  Sex: Female

DRUGS (3)
  1. AUGMENTIN '125' [Suspect]
     Indication: TONSILLITIS
     Dosage: 400MG PER DAY
     Route: 048
     Dates: start: 20051206, end: 20051212
  2. CAMOMILE TEA [Concomitant]
     Route: 048
     Dates: start: 20051206, end: 20051220
  3. BENZYDAMINE [Concomitant]
     Dosage: 2U PER DAY
     Route: 048
     Dates: start: 20051206, end: 20051209

REACTIONS (1)
  - MUSCLE SPASMS [None]
